FAERS Safety Report 4614856-0 (Version None)
Quarter: 2005Q1

REPORT INFORMATION
  Report Type: 
  Country: None (occurrence: None)
  Receive Date: 20050318
  Receipt Date: 20050318
  Transmission Date: 20050727
  Serious: Yes (Hospitalization)
  Sender: FDA-Public Use
  Company Number: None

PATIENT
  Age: 56 Year
  Sex: Male

DRUGS (14)
  1. WARFARIN 5MG PO [Suspect]
     Indication: ATRIAL FIBRILLATION
     Dosage: PO QD
     Route: 048
  2. PLAVIX [Suspect]
     Indication: ANGIOPATHY
     Dosage: 75MG PO QD
     Route: 048
     Dates: start: 20030806, end: 20050317
  3. ASPIRIN ENTERIC COATED TAB, EC 81MG [Concomitant]
  4. CLOPIDOGREL BISULFATE TAB 75 MG [Concomitant]
  5. DIGOXIN TAB 0.125MG [Concomitant]
  6. FUROSEMIDE TAB 120MG [Concomitant]
  7. GABAPENTIN CAP, ORAL 300MG [Concomitant]
  8. GLYBURIDE TAB 2.5MG [Concomitant]
  9. INSULIN REGULAR -HUMAN- INJ PER S.S. [Concomitant]
  10. ISOSORBIDE DINITRATE TAB, ORAL 10MG [Concomitant]
  11. LEVOTHYROXINE SODIUM TAB .0125MG [Concomitant]
  12. OMEPRAZOLE CAP CAP, SA 20MG [Concomitant]
  13. OXYCODONE + ACETAMINOPHEN TAB [Concomitant]
  14. PROMETHAZINE HCL INJ, SOLN 25MG/1ML [Concomitant]

REACTIONS (3)
  - CARDIAC FAILURE CONGESTIVE [None]
  - EPISTAXIS [None]
  - HAEMATEMESIS [None]
